FAERS Safety Report 6410559-0 (Version None)
Quarter: 2009Q4

REPORT INFORMATION
  Report Type: 
  Country: None (occurrence: None)
  Receive Date: 20091022
  Receipt Date: 20091020
  Transmission Date: 20100525
  Serious: Yes (Hospitalization, Other)
  Sender: FDA-Public Use
  Company Number: NL-ROXANE LABORATORIES, INC.-2009-RO-01073RO

PATIENT
  Age: 38 Year
  Sex: Female
  Weight: 105 kg

DRUGS (8)
  1. DIAZEPAM [Suspect]
  2. FLURAZEPAM [Suspect]
  3. FENTANYL-100 [Suspect]
     Indication: ANALGESIC THERAPY
  4. FENTANYL-100 [Suspect]
     Indication: SEDATION
  5. PROPOFOL [Suspect]
     Indication: ANALGESIC THERAPY
  6. PROPOFOL [Suspect]
     Indication: SEDATION
  7. FLUMAZENIL [Concomitant]
  8. RIFAMPICIN [Concomitant]
     Indication: DRUG CLEARANCE DECREASED
     Dosage: 1200 MG
     Route: 042

REACTIONS (10)
  - AIR EMBOLISM [None]
  - BRAIN CONTUSION [None]
  - COMA [None]
  - DRUG CLEARANCE DECREASED [None]
  - ENCEPHALOPATHY [None]
  - RIB FRACTURE [None]
  - ROAD TRAFFIC ACCIDENT [None]
  - SKULL FRACTURE [None]
  - SUBARACHNOID HAEMORRHAGE [None]
  - THERAPEUTIC AGENT TOXICITY [None]
